FAERS Safety Report 15452275 (Version 1)
Quarter: 2018Q4

REPORT INFORMATION
  Report Type: Report from Study
  Country: None (occurrence: BR)
  Receive Date: 20181001
  Receipt Date: 20181001
  Transmission Date: 20190204
  Serious: Yes (Hospitalization)
  Sender: FDA-Public Use
  Company Number: BR-ABBVIE-18K-020-2503345-00

PATIENT
  Age: 56 Year
  Sex: Female
  Weight: 105 kg

DRUGS (7)
  1. ADDERA D3 [Concomitant]
     Active Substance: CHOLECALCIFEROL
     Indication: VITAMIN SUPPLEMENTATION
  2. CORTISONE [Concomitant]
     Active Substance: CORTISONE\HYDROCORTISONE
     Indication: SYSTEMIC LUPUS ERYTHEMATOSUS
  3. PREDSIM [Concomitant]
     Active Substance: PREDNISOLONE
     Indication: SYSTEMIC LUPUS ERYTHEMATOSUS
  4. MAREVAN [Concomitant]
     Active Substance: WARFARIN SODIUM
     Indication: ANTICOAGULANT THERAPY
  5. VELUS [Concomitant]
     Indication: PRODUCT USED FOR UNKNOWN INDICATION
  6. CITONEURIN [Concomitant]
     Active Substance: CYANOCOBALAMIN\PYRIDOXINE HYDROCHLORIDE\THIAMINE
     Indication: SUPPLEMENTATION THERAPY
  7. HUMIRA [Suspect]
     Active Substance: ADALIMUMAB
     Indication: CROHN^S DISEASE
     Route: 058
     Dates: start: 20180710

REACTIONS (3)
  - Pain [Recovering/Resolving]
  - Spinal fracture [Recovering/Resolving]
  - Rib deformity [Recovering/Resolving]

NARRATIVE: CASE EVENT DATE: 201808
